FAERS Safety Report 8273524-7 (Version None)
Quarter: 2012Q2

REPORT INFORMATION
  Report Type: 
  Country: None (occurrence: None)
  Receive Date: 20120411
  Receipt Date: 20120409
  Transmission Date: 20120825
  Serious: No
  Sender: FDA-Public Use
  Company Number: US-B.I. PHARMACEUTICALS,INC./RIDGEFIELD-2012-BP-03810BP

PATIENT
  Sex: Female

DRUGS (16)
  1. ZOCOR [Concomitant]
     Route: 048
  2. VICODIN [Concomitant]
     Route: 048
  3. ATENOLOL [Concomitant]
     Indication: HYPERTENSION
     Dosage: 12.5 MG
     Route: 048
  4. SENIOR VITAMIN [Concomitant]
     Indication: PROPHYLAXIS
     Route: 048
  5. CLONAZEPAM [Concomitant]
     Indication: ANXIETY
     Dosage: 0.25 MG
     Route: 048
  6. ZOLOFT [Concomitant]
     Indication: DEPRESSION
     Dosage: 200 MG
     Route: 048
  7. PAMELOR [Concomitant]
     Route: 048
  8. SENIOR VITAMIN [Concomitant]
     Route: 048
  9. ZOCOR [Concomitant]
     Indication: BLOOD CHOLESTEROL INCREASED
     Dosage: 20 MG
     Route: 048
  10. ATENOLOL [Concomitant]
     Route: 048
  11. ZOLOFT [Concomitant]
     Route: 048
  12. CLONAZEPAM [Concomitant]
     Indication: INSOMNIA
     Route: 048
  13. PAMELOR [Concomitant]
     Indication: DEPRESSION
     Dosage: 10 MG
     Route: 048
  14. PRADAXA [Suspect]
     Indication: ATRIAL FIBRILLATION
     Dosage: 300 MG
     Route: 048
     Dates: start: 20110408
  15. HYDROCHLOROTHIAZIDE [Concomitant]
     Indication: HYPERTENSION
     Dosage: 25 MG
     Route: 048
  16. VICODIN [Concomitant]
     Indication: PAIN
     Route: 048

REACTIONS (6)
  - OSTEOARTHRITIS [None]
  - BURSA CALCIFICATION [None]
  - HYPERSOMNIA [None]
  - TENDON INJURY [None]
  - FALL [None]
  - CARTILAGE INJURY [None]
